FAERS Safety Report 25402699 (Version 1)
Quarter: 2025Q2

REPORT INFORMATION
  Report Type: Spontaneous
  Country: CA (occurrence: CA)
  Receive Date: 20250605
  Receipt Date: 20250605
  Transmission Date: 20250717
  Serious: Yes (Other)
  Sender: MYLAN
  Company Number: CA-MYLANLABS-2025M1047359

PATIENT
  Age: 82 Year
  Sex: Female

DRUGS (24)
  1. PREGABALIN [Suspect]
     Active Substance: PREGABALIN
     Indication: Pain
  2. PREGABALIN [Suspect]
     Active Substance: PREGABALIN
     Route: 065
  3. PREGABALIN [Suspect]
     Active Substance: PREGABALIN
     Route: 065
  4. PREGABALIN [Suspect]
     Active Substance: PREGABALIN
  5. KEVZARA [Suspect]
     Active Substance: SARILUMAB
     Indication: Rheumatoid arthritis
     Dosage: 200 MILLIGRAM, Q2W (1 EVERY 2 WEEKS)
  6. KEVZARA [Suspect]
     Active Substance: SARILUMAB
     Dosage: 200 MILLIGRAM, Q2W (1 EVERY 2 WEEKS)
     Route: 058
  7. KEVZARA [Suspect]
     Active Substance: SARILUMAB
     Dosage: 200 MILLIGRAM, Q2W (1 EVERY 2 WEEKS)
     Route: 058
  8. KEVZARA [Suspect]
     Active Substance: SARILUMAB
     Dosage: 200 MILLIGRAM, Q2W (1 EVERY 2 WEEKS)
  9. ASPIRIN [Concomitant]
     Active Substance: ASPIRIN
     Dosage: UNK, BIWEEKLY (2 EVERY 1 WEEK)
  10. ASPIRIN [Concomitant]
     Active Substance: ASPIRIN
     Dosage: UNK, BIWEEKLY (2 EVERY 1 WEEK)
     Route: 065
  11. ASPIRIN [Concomitant]
     Active Substance: ASPIRIN
     Dosage: UNK, BIWEEKLY (2 EVERY 1 WEEK)
     Route: 065
  12. ASPIRIN [Concomitant]
     Active Substance: ASPIRIN
     Dosage: UNK, BIWEEKLY (2 EVERY 1 WEEK)
  13. BETAHISTINE [Concomitant]
     Active Substance: BETAHISTINE
     Indication: Dizziness
     Dosage: 60 MILLIGRAM, Q8H (1 EVERY 8 HOURS)
  14. BETAHISTINE [Concomitant]
     Active Substance: BETAHISTINE
     Dosage: 60 MILLIGRAM, Q8H (1 EVERY 8 HOURS)
     Route: 065
  15. BETAHISTINE [Concomitant]
     Active Substance: BETAHISTINE
     Dosage: 60 MILLIGRAM, Q8H (1 EVERY 8 HOURS)
     Route: 065
  16. BETAHISTINE [Concomitant]
     Active Substance: BETAHISTINE
     Dosage: 60 MILLIGRAM, Q8H (1 EVERY 8 HOURS)
  17. CALCIUM [Concomitant]
     Active Substance: CALCIUM
  18. CALCIUM [Concomitant]
     Active Substance: CALCIUM
     Route: 065
  19. CALCIUM [Concomitant]
     Active Substance: CALCIUM
     Route: 065
  20. CALCIUM [Concomitant]
     Active Substance: CALCIUM
  21. TYLENOL [Concomitant]
     Active Substance: ACETAMINOPHEN
  22. TYLENOL [Concomitant]
     Active Substance: ACETAMINOPHEN
     Route: 065
  23. TYLENOL [Concomitant]
     Active Substance: ACETAMINOPHEN
     Route: 065
  24. TYLENOL [Concomitant]
     Active Substance: ACETAMINOPHEN

REACTIONS (28)
  - Abdominal discomfort [Not Recovered/Not Resolved]
  - Abdominal pain upper [Not Recovered/Not Resolved]
  - Ankle fracture [Not Recovered/Not Resolved]
  - Blood pressure fluctuation [Not Recovered/Not Resolved]
  - Dry skin [Not Recovered/Not Resolved]
  - Gait disturbance [Not Recovered/Not Resolved]
  - Hernia [Not Recovered/Not Resolved]
  - Increased tendency to bruise [Not Recovered/Not Resolved]
  - Injection site haemorrhage [Not Recovered/Not Resolved]
  - Nervousness [Not Recovered/Not Resolved]
  - Neuralgia [Not Recovered/Not Resolved]
  - Neuropathy peripheral [Not Recovered/Not Resolved]
  - Sensory loss [Not Recovered/Not Resolved]
  - Skin atrophy [Not Recovered/Not Resolved]
  - Sleep disorder due to a general medical condition [Not Recovered/Not Resolved]
  - Tissue infiltration [Not Recovered/Not Resolved]
  - Walking aid user [Not Recovered/Not Resolved]
  - Joint swelling [Not Recovered/Not Resolved]
  - Malaise [Not Recovered/Not Resolved]
  - Hypertension [Not Recovered/Not Resolved]
  - Fatigue [Not Recovered/Not Resolved]
  - Fall [Not Recovered/Not Resolved]
  - Dry eye [Not Recovered/Not Resolved]
  - Dizziness [Not Recovered/Not Resolved]
  - Back pain [Not Recovered/Not Resolved]
  - Arthralgia [Not Recovered/Not Resolved]
  - Pain [Not Recovered/Not Resolved]
  - Inappropriate schedule of product administration [Not Recovered/Not Resolved]
